FAERS Safety Report 21416061 (Version 1)
Quarter: 2022Q4

REPORT INFORMATION
  Report Type: Spontaneous
  Country: US (occurrence: US)
  Receive Date: 20221006
  Receipt Date: 20221006
  Transmission Date: 20230113
  Serious: No
  Sender: FDA-Public Use
  Company Number: US-ALLERGAN-2141977US

PATIENT
  Age: 7 Decade
  Sex: Male

DRUGS (2)
  1. VRAYLAR [Interacting]
     Active Substance: CARIPRAZINE
     Indication: Product used for unknown indication
     Dosage: 1.5 MG, BI-WEEKLY
  2. UNSPECIFIED INGREDIENT [Interacting]
     Active Substance: UNSPECIFIED INGREDIENT
     Indication: Helicobacter infection

REACTIONS (4)
  - Inappropriate schedule of product administration [Unknown]
  - Drug interaction [Unknown]
  - Helicobacter infection [Unknown]
  - Tardive dyskinesia [Unknown]
